FAERS Safety Report 9032307 (Version 2)
Quarter: 2013Q3

REPORT INFORMATION
  Report Type: Spontaneous
  Country: US (occurrence: US)
  Receive Date: 20130122
  Receipt Date: 20130829
  Transmission Date: 20140515
  Serious: No
  Sender: FDA-Public Use
  Company Number: US-TEVA-379717USA

PATIENT
  Sex: Female

DRUGS (3)
  1. QNASL [Suspect]
     Indication: AUTOIMMUNE DISORDER
     Dates: start: 2012
  2. METHYLPHENIDATE [Concomitant]
     Indication: NARCOLEPSY
  3. TRAZODONE [Concomitant]

REACTIONS (2)
  - Epistaxis [Not Recovered/Not Resolved]
  - Off label use [Unknown]
